FAERS Safety Report 17815557 (Version 1)
Quarter: 2020Q2

REPORT INFORMATION
  Report Type: Spontaneous
  Country: US (occurrence: US)
  Receive Date: 20200521
  Receipt Date: 20200521
  Transmission Date: 20200714
  Serious: Yes (Hospitalization)
  Sender: FDA-Public Use
  Company Number: None

PATIENT
  Age: 64 Year
  Sex: Female

DRUGS (20)
  1. WARFARIN [Concomitant]
     Active Substance: WARFARIN
  2. FENOFIBRATE. [Concomitant]
     Active Substance: FENOFIBRATE
  3. MORPHINE [Concomitant]
     Active Substance: MORPHINE
  4. FENOFIBRATE. [Concomitant]
     Active Substance: FENOFIBRATE
  5. QUETIAPINE. [Concomitant]
     Active Substance: QUETIAPINE
  6. BUDESONIDE. [Concomitant]
     Active Substance: BUDESONIDE
  7. BROVANA [Concomitant]
     Active Substance: ARFORMOTEROL TARTRATE
  8. BROVANA NEB [Concomitant]
  9. CLONAZEPAM. [Concomitant]
     Active Substance: CLONAZEPAM
  10. STIOLTO RESPIMAT [Concomitant]
     Active Substance: OLODATEROL HYDROCHLORIDE\TIOTROPIUM BROMIDE MONOHYDRATE
  11. XIFAXAN [Concomitant]
     Active Substance: RIFAXIMIN
  12. CARB/LEVO [Concomitant]
     Active Substance: CARBIDOPA\LEVODOPA
  13. TORSEMIDE. [Concomitant]
     Active Substance: TORSEMIDE
  14. METHAZOLAMID [Concomitant]
  15. LEVETIRACETAM. [Concomitant]
     Active Substance: LEVETIRACETAM
  16. ENOXAPARIN [Concomitant]
     Active Substance: ENOXAPARIN
  17. MAGNESIUM [Concomitant]
     Active Substance: MAGNESIUM
  18. AFINITOR [Suspect]
     Active Substance: EVEROLIMUS
     Route: 048
     Dates: start: 20190212
  19. FUROSEMIDE. [Concomitant]
     Active Substance: FUROSEMIDE
  20. OXYCODONE [Concomitant]
     Active Substance: OXYCODONE

REACTIONS (1)
  - Fracture [None]
